FAERS Safety Report 25426319 (Version 1)
Quarter: 2025Q2

REPORT INFORMATION
  Report Type: Spontaneous
  Country: US (occurrence: US)
  Receive Date: 20250612
  Receipt Date: 20250612
  Transmission Date: 20250716
  Serious: Yes (Hospitalization, Other)
  Sender: ALEMBIC
  Company Number: US-ALEMBIC PHARMACUETICALS LIMITED-2025SCAL000589

PATIENT

DRUGS (1)
  1. HYDROCHLOROTHIAZIDE\LOSARTAN POTASSIUM [Suspect]
     Active Substance: HYDROCHLOROTHIAZIDE\LOSARTAN POTASSIUM
     Indication: Hypertension
     Route: 065

REACTIONS (15)
  - Non-cardiogenic pulmonary oedema [Recovered/Resolved]
  - Asthenia [Recovered/Resolved]
  - Nausea [Unknown]
  - Vomiting [Unknown]
  - Dyspnoea [Recovered/Resolved]
  - Diarrhoea [Unknown]
  - Rales [Recovered/Resolved]
  - Hyperhidrosis [Recovered/Resolved]
  - Sinus tachycardia [Recovered/Resolved]
  - Leukopenia [Recovered/Resolved]
  - Procalcitonin increased [Recovered/Resolved]
  - Acute respiratory failure [Recovered/Resolved]
  - Tachypnoea [Recovered/Resolved]
  - Pyrexia [Recovered/Resolved]
  - Stomatitis [Recovered/Resolved]
